FAERS Safety Report 14073554 (Version 1)
Quarter: 2017Q4

REPORT INFORMATION
  Report Type: Spontaneous
  Country: US (occurrence: US)
  Receive Date: 20171010
  Receipt Date: 20171010
  Transmission Date: 20180321
  Serious: No
  Sender: FDA-Public Use
  Company Number: US-JNJFOC-20170819952

PATIENT
  Age: 71 Year
  Sex: Male
  Weight: 113.4 kg

DRUGS (1)
  1. TYLENOL EXTRA STRENGTH [Suspect]
     Active Substance: ACETAMINOPHEN
     Indication: ARTHRITIS
     Dosage: 2 OR 3 TIMES DAILY
     Route: 048
     Dates: start: 20170815, end: 20170820

REACTIONS (1)
  - Drug ineffective [Unknown]
